FAERS Safety Report 6937098-2 (Version None)
Quarter: 2010Q3

REPORT INFORMATION
  Report Type: 
  Country: None (occurrence: None)
  Receive Date: 20100817
  Receipt Date: 20100811
  Transmission Date: 20110219
  Serious: Yes (Life-Threatening, Hospitalization)
  Sender: FDA-Public Use
  Company Number: 104237

PATIENT
  Age: 19 Year
  Sex: Female
  Weight: 73.4827 kg

DRUGS (8)
  1. ETOPOSIDE [Suspect]
     Indication: ACUTE MYELOID LEUKAEMIA
     Dosage: 150MG, 1X/DAY FOR 7 DAYS, IV
     Route: 042
     Dates: start: 20100129, end: 20100204
  2. ANTIBACTERIAL MEROPENEM [Concomitant]
  3. ANTIBACTERIAL CIPROFLOXACIN [Concomitant]
  4. ANTIFUNGAL FLUCONAZOLE [Concomitant]
  5. ANTIFUNGAL VANCOMYCIN [Concomitant]
  6. VORICONAZOLE [Concomitant]
  7. ANTIFUNGAL AMPHOTERICINE B [Concomitant]
  8. LIPOSOME (AMBISOME) [Concomitant]

REACTIONS (3)
  - DYSPNOEA [None]
  - HYPOXIA [None]
  - RESPIRATORY TRACT INFECTION FUNGAL [None]
